FAERS Safety Report 20772274 (Version 2)
Quarter: 2022Q2

REPORT INFORMATION
  Report Type: Spontaneous
  Country: US (occurrence: US)
  Receive Date: 20220502
  Receipt Date: 20220525
  Transmission Date: 20220721
  Serious: No
  Sender: FDA-Public Use
  Company Number: US-BIOGEN-2017BI00370872

PATIENT
  Sex: Female

DRUGS (6)
  1. TECFIDERA [Suspect]
     Active Substance: DIMETHYL FUMARATE
     Indication: Multiple sclerosis
     Dosage: STARTING DOSE
     Route: 048
     Dates: start: 20170211, end: 201702
  2. TECFIDERA [Suspect]
     Active Substance: DIMETHYL FUMARATE
     Dosage: MAINTENANCE DOSE
     Route: 048
     Dates: start: 201702
  3. TECFIDERA [Suspect]
     Active Substance: DIMETHYL FUMARATE
     Dosage: MAINTENANCE DOSE
     Route: 048
     Dates: start: 20170218
  4. TECFIDERA [Suspect]
     Active Substance: DIMETHYL FUMARATE
     Dosage: STARTING DOSE
     Route: 048
     Dates: start: 20170211, end: 20170217
  5. TECFIDERA [Suspect]
     Active Substance: DIMETHYL FUMARATE
     Route: 048
     Dates: start: 201702, end: 20170328
  6. TECFIDERA [Suspect]
     Active Substance: DIMETHYL FUMARATE
     Route: 065
     Dates: start: 20170209

REACTIONS (14)
  - Intentional product misuse [Unknown]
  - Weight increased [Unknown]
  - Eating disorder [Unknown]
  - Depression [Unknown]
  - Dizziness [Unknown]
  - Swelling face [Unknown]
  - Pain in extremity [Unknown]
  - Erythema [Unknown]
  - Hot flush [Recovered/Resolved]
  - Burning sensation [Unknown]
  - Flushing [Unknown]
  - Pruritus [Unknown]
  - Rash papular [Unknown]
  - Gait disturbance [Unknown]
